FAERS Safety Report 7484111-2 (Version None)
Quarter: 2011Q2

REPORT INFORMATION
  Report Type: 
  Country: None (occurrence: None)
  Receive Date: 20110517
  Receipt Date: 20091030
  Transmission Date: 20111010
  Serious: Yes (Other)
  Sender: FDA-Public Use
  Company Number: US-BAYER-200937667NA

PATIENT
  Age: 49 Year
  Sex: Male
  Weight: 62.132 kg

DRUGS (18)
  1. PLATELETS [Concomitant]
     Dosage: 2 U, UNK
     Route: 042
     Dates: start: 20051224
  2. INTEGRILIN [Concomitant]
     Route: 048
  3. CRESTOR [Concomitant]
     Dosage: 10 MG, QD
     Route: 048
  4. ANTABUSE [Concomitant]
     Route: 048
  5. HEPARIN [Concomitant]
     Dosage: UNK
     Route: 042
     Dates: start: 20051224
  6. RED BLOOD CELLS [Concomitant]
     Dosage: 5 U, UNK
     Dates: start: 20051224
  7. CEFAZOLIN [Concomitant]
     Dosage: 2 G, UNK
  8. VERSED [Concomitant]
     Dosage: UNK
     Route: 042
     Dates: start: 20051224
  9. FENTANYL [Concomitant]
     Dosage: UNK
     Route: 042
     Dates: start: 20051224
  10. TRASYLOL [Suspect]
     Indication: CORONARY ARTERY BYPASS
     Route: 042
     Dates: start: 20051224
  11. DILANTIN [Concomitant]
     Dosage: 1 TAB TWICE DAILY
     Route: 048
  12. NITROGLYCERIN [Concomitant]
     Dosage: AS NEEDED
     Route: 048
  13. ACETYLSALICYLIC ACID SRT [Concomitant]
     Dosage: 325 MG, QD
     Route: 048
  14. FUROSEMIDE [Concomitant]
     Dosage: 40 MILLIGRAMS
     Route: 042
     Dates: start: 20051224
  15. IBUPROFEN [Concomitant]
     Dosage: 4 TO 5 PER DAY
     Route: 048
  16. LOPRESSOR [Concomitant]
     Route: 048
  17. TOPROL-XL [Concomitant]
     Route: 048
  18. COLACE [Concomitant]
     Dosage: 100 MILLIGRAMS
     Route: 048

REACTIONS (11)
  - STRESS [None]
  - FEAR [None]
  - EMOTIONAL DISTRESS [None]
  - UNEVALUABLE EVENT [None]
  - PAIN [None]
  - INJURY [None]
  - RENAL INJURY [None]
  - RENAL FAILURE [None]
  - RENAL IMPAIRMENT [None]
  - ANXIETY [None]
  - LIMB DISCOMFORT [None]
